FAERS Safety Report 12668860 (Version 2)
Quarter: 2016Q3

REPORT INFORMATION
  Report Type: Spontaneous
  Country: PH (occurrence: PH)
  Receive Date: 20160819
  Receipt Date: 20160915
  Transmission Date: 20161109
  Serious: Yes (Other)
  Sender: FDA-Public Use
  Company Number: PH-PFIZER INC-2016390650

PATIENT
  Age: 62 Year
  Sex: Male

DRUGS (1)
  1. VIAGRA [Suspect]
     Active Substance: SILDENAFIL CITRATE
     Indication: ERECTILE DYSFUNCTION
     Dosage: 50 MG, UNK
     Route: 048

REACTIONS (8)
  - Dysstasia [Unknown]
  - Gait disturbance [Unknown]
  - Feeling abnormal [Unknown]
  - Product packaging issue [Unknown]
  - Somnolence [Unknown]
  - Altered state of consciousness [Unknown]
  - Memory impairment [Unknown]
  - Micturition disorder [Unknown]

NARRATIVE: CASE EVENT DATE: 20160716
